FAERS Safety Report 5420394-8 (Version None)
Quarter: 2007Q3

REPORT INFORMATION
  Report Type: 
  Country: None (occurrence: None)
  Receive Date: 20070816
  Receipt Date: 20070806
  Transmission Date: 20080115
  Serious: Yes (Death)
  Sender: FDA-Public Use
  Company Number: 2007BI016644

PATIENT
  Age: 31 Year
  Sex: Female

DRUGS (1)
  1. NATALIZUMAB [Suspect]
     Indication: DRUG USE FOR UNKNOWN INDICATION
     Dosage: 300 MG;QM;IV
     Route: 042
     Dates: start: 20070201

REACTIONS (4)
  - ANGER [None]
  - COMPLETED SUICIDE [None]
  - DEPRESSION [None]
  - HOMELESS [None]
